FAERS Safety Report 8276730-0 (Version None)
Quarter: 2012Q2

REPORT INFORMATION
  Report Type: 
  Country: None (occurrence: None)
  Receive Date: 20120405
  Receipt Date: 20120330
  Transmission Date: 20120825
  Serious: No
  Sender: FDA-Public Use
  Company Number: 2011SP056303

PATIENT
  Age: 44 Year
  Sex: Female
  Weight: 64.3 kg

DRUGS (16)
  1. REBETOL [Suspect]
     Indication: HEPATITIS C
     Dosage: 800 MG;QD;PO 600 MG;QD;PO
     Route: 048
     Dates: start: 20110428, end: 20110721
  2. REBETOL [Suspect]
     Indication: HEPATITIS C
     Dosage: 800 MG;QD;PO 600 MG;QD;PO
     Route: 048
     Dates: start: 20110104, end: 20110427
  3. MUCOSTA [Concomitant]
  4. LOXOPROFEN SODIUM [Concomitant]
  5. INTERFERON BETA NOS [Suspect]
     Indication: HEPATITIS C
     Dosage: 3 MIU;QW;INDRP, 6 MIU;TIW;INDRP, 6 MIU;QD;INDRP, 6 MIU;TIW;INDRP 6 MIU;QW;INDRP, 6 MIU;INDRP
     Route: 041
     Dates: start: 20110105, end: 20110107
  6. INTERFERON BETA NOS [Suspect]
     Indication: HEPATITIS C
     Dosage: 3 MIU;QW;INDRP, 6 MIU;TIW;INDRP, 6 MIU;QD;INDRP, 6 MIU;TIW;INDRP 6 MIU;QW;INDRP, 6 MIU;INDRP
     Route: 041
     Dates: start: 20110623
  7. INTERFERON BETA NOS [Suspect]
     Indication: HEPATITIS C
     Dosage: 3 MIU;QW;INDRP, 6 MIU;TIW;INDRP, 6 MIU;QD;INDRP, 6 MIU;TIW;INDRP 6 MIU;QW;INDRP, 6 MIU;INDRP
     Route: 041
     Dates: start: 20110721
  8. INTERFERON BETA NOS [Suspect]
     Indication: HEPATITIS C
     Dosage: 3 MIU;QW;INDRP, 6 MIU;TIW;INDRP, 6 MIU;QD;INDRP, 6 MIU;TIW;INDRP 6 MIU;QW;INDRP, 6 MIU;INDRP
     Route: 041
     Dates: start: 20110124, end: 20110203
  9. INTERFERON BETA NOS [Suspect]
     Indication: HEPATITIS C
     Dosage: 3 MIU;QW;INDRP, 6 MIU;TIW;INDRP, 6 MIU;QD;INDRP, 6 MIU;TIW;INDRP 6 MIU;QW;INDRP, 6 MIU;INDRP
     Route: 041
     Dates: start: 20110104, end: 20110104
  10. INTERFERON BETA NOS [Suspect]
     Indication: HEPATITIS C
     Dosage: 3 MIU;QW;INDRP, 6 MIU;TIW;INDRP, 6 MIU;QD;INDRP, 6 MIU;TIW;INDRP 6 MIU;QW;INDRP, 6 MIU;INDRP
     Route: 041
     Dates: start: 20110112, end: 20110121
  11. MAGMITT [Concomitant]
  12. MUCOSTA [Concomitant]
  13. RABEPRAZOLE SODIUM [Concomitant]
  14. PLETAL [Concomitant]
  15. MOTILIUM [Concomitant]
  16. LOXOPROFEN SODIUM [Concomitant]

REACTIONS (2)
  - SINUS BRADYCARDIA [None]
  - PYREXIA [None]
